FAERS Safety Report 21054264 (Version 1)
Quarter: 2022Q3

REPORT INFORMATION
  Report Type: Spontaneous
  Country: US (occurrence: None)
  Receive Date: 20220707
  Receipt Date: 20220707
  Transmission Date: 20221027
  Serious: Yes (Hospitalization)
  Sender: FDA-Public Use
  Company Number: None

PATIENT
  Age: 53 Year
  Sex: Male
  Weight: 107.1 kg

DRUGS (6)
  1. INGREZZA [Suspect]
     Active Substance: VALBENAZINE
     Indication: Tardive dyskinesia
     Dosage: OTHER QUANTITY : 1 CAPSULE(S);?FREQUENCY : DAILY;?
     Route: 048
  2. RISPERIDONE [Concomitant]
     Active Substance: RISPERIDONE
  3. LISINOPRIL [Concomitant]
     Active Substance: LISINOPRIL
  4. BUSPAR [Concomitant]
     Active Substance: BUSPIRONE HYDROCHLORIDE
  5. CELEXA [Concomitant]
     Active Substance: CITALOPRAM HYDROBROMIDE
  6. ELIQUIS [Concomitant]
     Active Substance: APIXABAN

REACTIONS (5)
  - Mobility decreased [None]
  - Fall [None]
  - Muscular weakness [None]
  - Reduced facial expression [None]
  - Parkinsonism [None]

NARRATIVE: CASE EVENT DATE: 20220606
